FAERS Safety Report 4974179-7 (Version None)
Quarter: 2006Q2

REPORT INFORMATION
  Report Type: 
  Country: None (occurrence: None)
  Receive Date: 20060417
  Receipt Date: 20060213
  Transmission Date: 20061013
  Serious: Yes (Other)
  Sender: FDA-Public Use
  Company Number: US-MERCK-0602USA04531

PATIENT
  Age: 83 Year
  Sex: Male
  Weight: 68 kg

DRUGS (15)
  1. VIOXX [Suspect]
     Indication: BACK PAIN
     Route: 048
     Dates: start: 20010417, end: 20040930
  2. VIOXX [Suspect]
     Route: 048
     Dates: start: 20010417, end: 20040930
  3. CYCLOCORT [Concomitant]
     Route: 065
  4. TRANSDERM SCOP [Concomitant]
     Route: 065
  5. MENTAX [Concomitant]
     Route: 065
  6. KLOR-CON [Concomitant]
     Route: 065
  7. DIPHENOXYLATE [Concomitant]
     Route: 065
  8. NEOMYCIN [Concomitant]
     Route: 065
  9. FLUOCINONIDE [Concomitant]
     Route: 065
  10. TOBRADEX [Concomitant]
     Route: 065
  11. DIOVAN [Concomitant]
     Indication: HYPERTENSION
     Route: 065
     Dates: start: 20030120
  12. NORVASC [Concomitant]
     Indication: HYPERTENSION
     Route: 065
     Dates: start: 19840101
  13. HYDRODIURIL [Concomitant]
     Indication: OEDEMA
     Route: 048
     Dates: start: 20030420
  14. ASPIRIN [Concomitant]
     Route: 065
     Dates: start: 20030120
  15. TYLENOL (CAPLET) [Concomitant]
     Indication: HEADACHE
     Route: 065

REACTIONS (6)
  - BLOOD CHOLESTEROL INCREASED [None]
  - CHEST PAIN [None]
  - DIZZINESS [None]
  - DYSPEPSIA [None]
  - MACULAR DEGENERATION [None]
  - RETINAL VASCULAR OCCLUSION [None]
